FAERS Safety Report 6337662-8 (Version None)
Quarter: 2009Q3

REPORT INFORMATION
  Report Type: 
  Country: None (occurrence: None)
  Receive Date: 20090902
  Receipt Date: 20090825
  Transmission Date: 20100115
  Serious: No
  Sender: FDA-Public Use
  Company Number: AU-EISAI INC.-E3810-03099-SPO-AU

PATIENT
  Age: 71 Year
  Sex: Male

DRUGS (2)
  1. PARIET (RABEPRAZOLE) [Suspect]
     Indication: GASTRITIS
     Dosage: UNKNOWN
     Route: 048
     Dates: start: 20090501
  2. METRONIDAZLE [Concomitant]
     Indication: ABDOMINAL PAIN
     Dates: start: 20090811

REACTIONS (2)
  - ABDOMINAL PAIN [None]
  - RENAL FAILURE ACUTE [None]
